FAERS Safety Report 21974517 (Version 2)
Quarter: 2023Q1

REPORT INFORMATION
  Report Type: Spontaneous
  Country: KR (occurrence: KR)
  Receive Date: 20230209
  Receipt Date: 20230224
  Transmission Date: 20230418
  Serious: Yes (Death)
  Sender: FDA-Public Use
  Company Number: KR-TEVA-2023-KR-2852737

PATIENT
  Age: 62 Year
  Sex: Female

DRUGS (8)
  1. DOXORUBICIN [Suspect]
     Active Substance: DOXORUBICIN
     Indication: Endometrial stromal sarcoma
     Dosage: FOR THREE COURSES, 75 MG/M2 ONCE IN 3 WEEKS
     Route: 065
  2. DOXORUBICIN [Suspect]
     Active Substance: DOXORUBICIN
     Indication: Ovarian germ cell teratoma benign
  3. ETOPOSIDE [Suspect]
     Active Substance: ETOPOSIDE
     Indication: Endometrial stromal sarcoma
     Route: 065
  4. ETOPOSIDE [Suspect]
     Active Substance: ETOPOSIDE
     Indication: Ovarian germ cell teratoma benign
  5. IFOSFAMIDE [Suspect]
     Active Substance: IFOSFAMIDE
     Indication: Endometrial stromal sarcoma
     Route: 065
  6. IFOSFAMIDE [Suspect]
     Active Substance: IFOSFAMIDE
     Indication: Ovarian germ cell teratoma benign
  7. CISPLATIN [Suspect]
     Active Substance: CISPLATIN
     Indication: Endometrial stromal sarcoma
     Route: 065
  8. CISPLATIN [Suspect]
     Active Substance: CISPLATIN
     Indication: Ovarian germ cell teratoma benign

REACTIONS (1)
  - Drug ineffective [Fatal]
